FAERS Safety Report 18717588 (Version 1)
Quarter: 2021Q1

REPORT INFORMATION
  Report Type: Spontaneous
  Country: US (occurrence: US)
  Receive Date: 20210108
  Receipt Date: 20210108
  Transmission Date: 20210419
  Serious: Yes (Death)
  Sender: FDA-Public Use
  Company Number: None

PATIENT
  Age: 67 Year
  Sex: Male
  Weight: 111.15 kg

DRUGS (14)
  1. IMDEVIMAB. [Suspect]
     Active Substance: IMDEVIMAB
     Indication: CORONAVIRUS INFECTION
     Dosage: ?          OTHER FREQUENCY:ONCE;?
     Route: 041
     Dates: start: 20210107, end: 20210107
  2. FLUTICASONE 50MCG [Concomitant]
     Active Substance: FLUTICASONE
  3. INSULIN, DETEMIR, 100 UNIT/ML [Concomitant]
  4. FUROSEMIDE 40MG TAB 80MG QD [Concomitant]
  5. CLOPIDOGREL 75MG QD [Concomitant]
  6. CASIRIVIMAB. [Suspect]
     Active Substance: CASIRIVIMAB
     Indication: CORONAVIRUS INFECTION
     Dosage: ?          OTHER FREQUENCY:ONCE;?
     Route: 041
     Dates: start: 20210107, end: 20210107
  7. AMOLDIPINE BESYLATE 10MG QD [Concomitant]
  8. ALBUTEROL  90MCG INHALE 2 PUFF Q4H [Concomitant]
  9. HYDRALAZINE 25MG TID [Concomitant]
  10. NITROGYCERIN 0.4MG SL [Concomitant]
  11. MAGNESIUM OXIDE 400MG QD [Concomitant]
  12. CARVEDIOLOL 6.25MG QD [Concomitant]
  13. CALCIUM ACETATE 667MG 2 CAP TID [Concomitant]
  14. ASPIRIN 81MG E.C QD [Concomitant]

REACTIONS (1)
  - Death [None]

NARRATIVE: CASE EVENT DATE: 20200108
